FAERS Safety Report 4938421-0 (Version None)
Quarter: 2006Q1

REPORT INFORMATION
  Report Type: 
  Country: None (occurrence: None)
  Receive Date: 20060309
  Receipt Date: 20060227
  Transmission Date: 20060701
  Serious: Yes (Congenital Anomaly)
  Sender: FDA-Public Use
  Company Number: US-BRISTOL-MYERS SQUIBB COMPANY-13297197

PATIENT
  Age: 41 Week
  Sex: Male

DRUGS (3)
  1. BUSPAR [Suspect]
     Indication: DEPRESSION
  2. ORTHO EVRA [Suspect]
     Route: 064
  3. WELLBUTRIN SR [Suspect]
     Indication: DEPRESSION

REACTIONS (2)
  - PULMONARY ARTERY STENOSIS [None]
  - VENTRICULAR SEPTAL DEFECT [None]
